FAERS Safety Report 11260831 (Version 1)
Quarter: 2015Q3

REPORT INFORMATION
  Report Type: Spontaneous
  Country: CH (occurrence: CH)
  Receive Date: 20150710
  Receipt Date: 20150710
  Transmission Date: 20151125
  Serious: Yes (Other)
  Sender: FDA-Public Use
  Company Number: CH-LPDUSPRD-20150522

PATIENT
  Age: 94 Year
  Sex: Female
  Weight: 59.6 kg

DRUGS (8)
  1. CO-VALSARTAN [Concomitant]
     Active Substance: HYDROCHLOROTHIAZIDE\VALSARTAN
     Dosage: HALF IN A DAY
     Route: 065
  2. TORASEMID SANDOZ [Concomitant]
     Active Substance: TORSEMIDE
     Dosage: 160/12.5 MG (1 IN 1 D)
     Route: 048
  3. TRANSIPEG FORTE [Concomitant]
     Dosage: 1 DOSAGE FORM, 1 IN 1D
     Route: 048
  4. PANTOPRAZOL SANDOZ [Concomitant]
     Dosage: 40 MG, 1 IN 1 D
     Route: 048
  5. ASPIRIN CARDIO [Concomitant]
     Active Substance: ASPIRIN
     Dosage: 100 MG, 1 IN 1D
     Route: 048
  6. NEO MERCAZOLE [Concomitant]
     Active Substance: CARBIMAZOLE
     Dosage: 5 MG, 1 IN 1 D
     Route: 048
  7. PREDNISON [Concomitant]
     Active Substance: PREDNISONE
     Dosage: DOSE NOT PROVIDED
     Route: 065
  8. FERINJECT [Suspect]
     Active Substance: FERRIC CARBOXYMALTOSE
     Dosage: 500 MG, 6 TOTAL
     Route: 041
     Dates: start: 20131228, end: 20150331

REACTIONS (4)
  - Application site pain [Unknown]
  - C-reactive protein increased [Unknown]
  - Pyrexia [Unknown]
  - Chills [Unknown]

NARRATIVE: CASE EVENT DATE: 20150331
